FAERS Safety Report 4963370-1 (Version None)
Quarter: 2006Q2

REPORT INFORMATION
  Report Type: 
  Country: None (occurrence: None)
  Receive Date: 20060404
  Receipt Date: 20060404
  Transmission Date: 20061013
  Serious: Yes (Hospitalization, Disabling)
  Sender: FDA-Public Use
  Company Number: None

PATIENT
  Sex: Male
  Weight: 81.6475 kg

DRUGS (2)
  1. DEPO-MEDROL [Suspect]
     Indication: INTERVERTEBRAL DISC PROTRUSION
     Dosage: 20 MG DEPO-MEDROL 2 INJECTION FACET BLOCK
     Dates: start: 19960827
  2. MARCAINE [Suspect]
     Indication: INTERVERTEBRAL DISC PROTRUSION
     Dosage: 3CC 0.5 % MARCAINE 2 INJECTION FACET BLOCK
     Dates: start: 19960827

REACTIONS (1)
  - DRUG ADMINISTRATION ERROR [None]
